FAERS Safety Report 21476990 (Version 3)
Quarter: 2023Q1

REPORT INFORMATION
  Report Type: Report from Study
  Country: US (occurrence: US)
  Receive Date: 20221019
  Receipt Date: 20230116
  Transmission Date: 20230417
  Serious: Yes (Other)
  Sender: FDA-Public Use
  Company Number: US-AUROBINDO-AUR-APL-2022-042623

PATIENT
  Age: 69 Year
  Sex: Female

DRUGS (6)
  1. BELINOSTAT [Suspect]
     Active Substance: BELINOSTAT
     Indication: Acute myeloid leukaemia
     Dosage: 9000 MILLIGRAM
     Route: 065
     Dates: start: 20220809
  2. BELINOSTAT [Suspect]
     Active Substance: BELINOSTAT
     Dosage: 9000 MILLIGRAM
     Route: 065
     Dates: start: 20220830
  3. BELINOSTAT [Suspect]
     Active Substance: BELINOSTAT
     Dosage: 8700 MILLIGRAM
     Route: 065
     Dates: start: 20220927
  4. PEVONEDISTAT HYDROCHLORIDE [Suspect]
     Active Substance: PEVONEDISTAT HYDROCHLORIDE
     Indication: Acute myeloid leukaemia
     Dosage: 270 MILLIGRAM
     Route: 065
     Dates: start: 20220809
  5. PEVONEDISTAT HYDROCHLORIDE [Suspect]
     Active Substance: PEVONEDISTAT HYDROCHLORIDE
     Dosage: 270 MILLIGRAM
     Route: 065
     Dates: start: 20220830
  6. PEVONEDISTAT HYDROCHLORIDE [Suspect]
     Active Substance: PEVONEDISTAT HYDROCHLORIDE
     Dosage: 258 MILLIGRAM
     Route: 065
     Dates: start: 20220927

REACTIONS (5)
  - Febrile neutropenia [Unknown]
  - Electrocardiogram QT prolonged [Unknown]
  - Pyrexia [Unknown]
  - Dyspnoea [Unknown]
  - Tremor [Unknown]

NARRATIVE: CASE EVENT DATE: 20220809
